FAERS Safety Report 13407077 (Version 1)
Quarter: 2017Q2

REPORT INFORMATION
  Report Type: Spontaneous
  Country: GB (occurrence: GB)
  Receive Date: 20170405
  Receipt Date: 20170405
  Transmission Date: 20170830
  Serious: Yes (Disabling)
  Sender: FDA-Public Use
  Company Number: GB-ABBVIE-17P-167-1933061-00

PATIENT
  Age: 98 Year
  Sex: Female

DRUGS (4)
  1. ADCAL-D3 (CALCIUM CARBONATE/COLECALCIFEROL) [Concomitant]
     Indication: PRODUCT USED FOR UNKNOWN INDICATION
  2. EPILIM [Suspect]
     Active Substance: VALPROATE SODIUM
     Indication: HALLUCINATION, VISUAL
     Route: 048
     Dates: start: 20161224, end: 20170309
  3. SENNA (SENNA) [Concomitant]
     Indication: PRODUCT USED FOR UNKNOWN INDICATION
  4. RIVASTIGMINE (RIVASTIGMINE) [Concomitant]
     Indication: PRODUCT USED FOR UNKNOWN INDICATION

REACTIONS (10)
  - Heart rate irregular [Not Recovered/Not Resolved]
  - Gait disturbance [Not Recovered/Not Resolved]
  - Somnolence [Recovered/Resolved]
  - Confusional state [Recovered/Resolved with Sequelae]
  - Joint swelling [Recovered/Resolved]
  - Peripheral swelling [Not Recovered/Not Resolved]
  - Tremor [Recovered/Resolved]
  - Depression [Recovered/Resolved with Sequelae]
  - Feeling cold [Not Recovered/Not Resolved]
  - Stupor [Recovered/Resolved]
